FAERS Safety Report 8423502-X (Version None)
Quarter: 2012Q2

REPORT INFORMATION
  Report Type: 
  Country: None (occurrence: None)
  Receive Date: 20120323
  Receipt Date: 20110315
  Transmission Date: 20120825
  Serious: Yes (Disabling)
  Sender: FDA-Public Use
  Company Number: 163-21880-11022383

PATIENT
  Age: 85 Year
  Sex: Male

DRUGS (5)
  1. REVLIMID [Suspect]
     Indication: MULTIPLE MYELOMA
     Dosage: 25 MG, DAILY X 21 DAYS, PO
     Route: 048
     Dates: start: 20110214
  2. LEXAPRO [Concomitant]
  3. OMEPRAZOLE [Concomitant]
  4. FLOMAX [Concomitant]
  5. RITALIN [Concomitant]

REACTIONS (2)
  - FATIGUE [None]
  - RASH [None]
